FAERS Safety Report 12623056 (Version 2)
Quarter: 2016Q3

REPORT INFORMATION
  Report Type: Spontaneous
  Country: US (occurrence: US)
  Receive Date: 20160804
  Receipt Date: 20160808
  Transmission Date: 20161109
  Serious: Yes (Hospitalization)
  Sender: FDA-Public Use
  Company Number: US-RARE DISEASE THERAPEUTICS, INC.-1055880

PATIENT
  Age: 22 Year
  Sex: Female
  Weight: 81.65 kg

DRUGS (5)
  1. CITALOPRAM [Concomitant]
     Active Substance: CITALOPRAM HYDROBROMIDE
  2. CYSTADANE [Suspect]
     Active Substance: BETAINE
     Indication: HOMOCYSTINURIA
     Dates: start: 20140813
  3. PYRIDOXINE [Concomitant]
     Active Substance: PYRIDOXINE
  4. INVEGA SUSTENNA [Concomitant]
     Active Substance: PALIPERIDONE PALMITATE
  5. FOLIC ACID. [Concomitant]
     Active Substance: FOLIC ACID

REACTIONS (1)
  - Hysterectomy [Recovered/Resolved]

NARRATIVE: CASE EVENT DATE: 20160601
